FAERS Safety Report 26008027 (Version 1)
Quarter: 2025Q4

REPORT INFORMATION
  Report Type: Spontaneous
  Country: EU (occurrence: EU)
  Receive Date: 20251106
  Receipt Date: 20251106
  Transmission Date: 20260118
  Serious: Yes (Life-Threatening, Other)
  Sender: SANDOZ
  Company Number: EU-SANDOZ-SDZ2025DE082908

PATIENT
  Age: 59 Year
  Sex: Female

DRUGS (1)
  1. METFORMIN [Suspect]
     Active Substance: METFORMIN HYDROCHLORIDE
     Indication: Product used for unknown indication
     Dosage: 1000 - 1 A PHARMA
     Route: 065
     Dates: start: 20250929

REACTIONS (2)
  - Loss of consciousness [Unknown]
  - Stress [Unknown]

NARRATIVE: CASE EVENT DATE: 20250101
